FAERS Safety Report 6067957-7 (Version None)
Quarter: 2009Q1

REPORT INFORMATION
  Report Type: 
  Country: None (occurrence: None)
  Receive Date: 20090206
  Receipt Date: 20090128
  Transmission Date: 20090719
  Serious: Yes (Hospitalization)
  Sender: FDA-Public Use
  Company Number: FR-JNJFOC-20090106953

PATIENT
  Sex: Female

DRUGS (4)
  1. IMODIUM [Suspect]
     Indication: DIARRHOEA
     Route: 048
  2. PARACETAMOL [Suspect]
     Route: 048
  3. PARACETAMOL [Suspect]
     Indication: DRUG USE FOR UNKNOWN INDICATION
     Route: 048
  4. SCHOUM [Suspect]
     Indication: GASTROINTESTINAL DISORDER
     Route: 048

REACTIONS (1)
  - STEVENS-JOHNSON SYNDROME [None]
